FAERS Safety Report 7873005-6 (Version None)
Quarter: 2011Q4

REPORT INFORMATION
  Report Type: 
  Country: None (occurrence: None)
  Receive Date: 20111030
  Receipt Date: 20110425
  Transmission Date: 20120403
  Serious: No
  Sender: FDA-Public Use
  Company Number: US-AMGEN-USASP2010011902

PATIENT
  Age: 56 Year
  Sex: Male

DRUGS (6)
  1. LIPITOR [Concomitant]
     Dosage: 10 MG, UNK
  2. INDOCIN                            /00003801/ [Concomitant]
     Dosage: 75 MG, UNK
  3. ARAVA [Concomitant]
     Dosage: 10 MG, UNK
  4. OMEPRAZOLE [Concomitant]
     Dosage: 10 MG, UNK
  5. ENBREL [Suspect]
     Indication: RHEUMATOID ARTHRITIS
     Dosage: 50 MG, QWK
     Dates: start: 20050201
  6. TOPROL-XL [Concomitant]
     Dosage: 25 MG, UNK

REACTIONS (3)
  - INJECTION SITE ERYTHEMA [None]
  - INJECTION SITE PRURITUS [None]
  - INJECTION SITE PAIN [None]
